FAERS Safety Report 17942085 (Version 1)
Quarter: 2020Q2

REPORT INFORMATION
  Report Type: Spontaneous
  Country: US (occurrence: US)
  Receive Date: 20200624
  Receipt Date: 20200624
  Transmission Date: 20200714
  Serious: Yes (Other)
  Sender: FDA-Public Use
  Company Number: US-AMGEN-USASP2020098298

PATIENT
  Sex: Female

DRUGS (1)
  1. PROLIA [Suspect]
     Active Substance: DENOSUMAB
     Indication: OSTEOMALACIA
     Dosage: UNK UNK, Q6MO
     Route: 065

REACTIONS (4)
  - Fall [Unknown]
  - Femur fracture [Unknown]
  - Head injury [Unknown]
  - Off label use [Unknown]
